FAERS Safety Report 4603508-9 (Version None)
Quarter: 2005Q1

REPORT INFORMATION
  Report Type: 
  Country: None (occurrence: None)
  Receive Date: 20050214
  Receipt Date: 20041229
  Transmission Date: 20050727
  Serious: No
  Sender: FDA-Public Use
  Company Number: USA041184554

PATIENT
  Age: 44 Year
  Sex: Male
  Weight: 117 kg

DRUGS (3)
  1. CIALIS [Suspect]
     Indication: ERECTILE DYSFUNCTION
     Dosage: 20 MG/L OTHER
     Route: 050
     Dates: start: 20040805, end: 20041109
  2. CRESTOR [Concomitant]
  3. ACETYLSALICYLIC ACID SRT [Concomitant]

REACTIONS (1)
  - CHEST PAIN [None]
